FAERS Safety Report 13371508 (Version 3)
Quarter: 2017Q2

REPORT INFORMATION
  Report Type: Report from Study
  Country: US (occurrence: US)
  Receive Date: 20170324
  Receipt Date: 20170509
  Transmission Date: 20170830
  Serious: Yes (Other)
  Sender: FDA-Public Use
  Company Number: US-GILEAD-2017-0258986

PATIENT
  Age: 61 Year
  Sex: Female

DRUGS (1)
  1. LEDIPASVIR/SOFOSBUVIR [Suspect]
     Active Substance: LEDIPASVIR\SOFOSBUVIR
     Indication: HEPATITIS C
     Dosage: 1 DF, UNK
     Route: 048
     Dates: start: 20160826, end: 20161116

REACTIONS (7)
  - Asthenia [Unknown]
  - Insomnia [Unknown]
  - Adult T-cell lymphoma/leukaemia [Not Recovered/Not Resolved]
  - Malaise [Unknown]
  - Intentional product use issue [Recovered/Resolved]
  - Fatigue [Unknown]
  - Arthralgia [Unknown]
